FAERS Safety Report 9132314 (Version 1)
Quarter: 2013Q1

REPORT INFORMATION
  Report Type: Spontaneous
  Country: US (occurrence: US)
  Receive Date: 20130301
  Receipt Date: 20130301
  Transmission Date: 20140127
  Serious: Yes (Other)
  Sender: FDA-Public Use
  Company Number: US-PFIZER INC-2013072129

PATIENT
  Age: 69 Year
  Sex: Female

DRUGS (8)
  1. ATENOLOL [Suspect]
     Dosage: UNK
  2. LISINOPRIL [Suspect]
     Dosage: UNK
     Route: 048
  3. PRILOSEC [Suspect]
     Dosage: UNK
     Route: 048
  4. JAKAFI [Suspect]
     Indication: POLYCYTHAEMIA VERA
     Dosage: 20 MG, 2X/DAY
     Route: 048
     Dates: start: 20120202
  5. ELAVIL [Suspect]
     Indication: ANTIDEPRESSANT THERAPY
     Dosage: UNK
     Dates: end: 2012
  6. REMERON [Concomitant]
     Dosage: UNK
     Route: 065
  7. ASPIRIN [Concomitant]
     Dosage: UNK
     Route: 065
  8. CALCIUM LACTATE [Concomitant]
     Dosage: UNK
     Route: 065

REACTIONS (14)
  - Pulmonary hypertension [Unknown]
  - Bone marrow failure [Unknown]
  - Muscle spasms [Not Recovered/Not Resolved]
  - Temperature intolerance [Recovered/Resolved]
  - Chills [Recovered/Resolved]
  - Musculoskeletal discomfort [Recovered/Resolved]
  - Feeling cold [Recovered/Resolved]
  - Bone pain [Recovered/Resolved]
  - Insomnia [Recovered/Resolved]
  - Depressed mood [Recovered/Resolved]
  - Palpitations [Recovered/Resolved]
  - Pyrexia [Recovered/Resolved]
  - Dyspnoea [Unknown]
  - Weight increased [Unknown]
